FAERS Safety Report 7318818-4 (Version None)
Quarter: 2011Q1

REPORT INFORMATION
  Report Type: 
  Country: None (occurrence: None)
  Receive Date: 20110228
  Receipt Date: 20100713
  Transmission Date: 20110831
  Serious: No
  Sender: FDA-Public Use
  Company Number: A0872156A

PATIENT
  Sex: Female

DRUGS (1)
  1. IMITREX [Suspect]
     Indication: MIGRAINE
     Dosage: 6MG AS DIRECTED
     Route: 058

REACTIONS (5)
  - PANIC ATTACK [None]
  - EYE DISORDER [None]
  - ANXIETY [None]
  - PALPITATIONS [None]
  - HEART RATE INCREASED [None]
